FAERS Safety Report 9524890 (Version 1)
Quarter: 2013Q3

REPORT INFORMATION
  Report Type: Spontaneous
  Country: US (occurrence: None)
  Receive Date: 20130912
  Receipt Date: 20130912
  Transmission Date: 20140515
  Serious: Yes (Life-Threatening, Hospitalization, Disabling)
  Sender: FDA-Public Use
  Company Number: None

PATIENT
  Age: 59 Year
  Sex: Male
  Weight: 56.7 kg

DRUGS (16)
  1. DEPAKOTE [Suspect]
     Indication: HEADACHE
     Dosage: 1 PILL
     Route: 048
     Dates: start: 20130730, end: 20130826
  2. TACROLIMUS [Suspect]
  3. NEXIUM [Suspect]
  4. IMURAN [Suspect]
  5. CALCITRIOL [Suspect]
  6. ACTONEL [Suspect]
  7. METOPROLOL [Suspect]
  8. VITAMIN D [Suspect]
  9. VALGANCICLOVIR [Suspect]
  10. VORICONAZOLE [Suspect]
  11. DILTIAZEM [Suspect]
  12. PREDNISONE [Suspect]
  13. BACTRIM [Suspect]
  14. LOVENOX [Suspect]
  15. CALCIUM CITRATE [Suspect]
  16. MULTIVITAMIN [Suspect]

REACTIONS (4)
  - Dyspnoea [None]
  - Total lung capacity decreased [None]
  - Lung transplant rejection [None]
  - Drug interaction [None]
